FAERS Safety Report 12064742 (Version 1)
Quarter: 2016Q1

REPORT INFORMATION
  Report Type: Spontaneous
  Country: US (occurrence: US)
  Receive Date: 20160210
  Receipt Date: 20160210
  Transmission Date: 20160526
  Serious: No
  Sender: FDA-Public Use
  Company Number: US-ALLERGAN-1516328US

PATIENT
  Sex: Female

DRUGS (3)
  1. BOTOX [Suspect]
     Active Substance: ONABOTULINUMTOXINA
     Indication: TORTICOLLIS
     Dosage: 40 UNITS, SINGLE
     Route: 030
     Dates: start: 20150619, end: 20150619
  2. BOTOX [Suspect]
     Active Substance: ONABOTULINUMTOXINA
     Dosage: 70 UNITS, SINGLE
     Route: 030
     Dates: start: 20150619, end: 20150619
  3. BOTOX [Suspect]
     Active Substance: ONABOTULINUMTOXINA
     Indication: TREMOR
     Dosage: 150 UNITS, SINGLE
     Route: 030
     Dates: start: 20150619, end: 20150619

REACTIONS (4)
  - Musculoskeletal stiffness [Recovered/Resolved]
  - Off label use [Unknown]
  - Neck pain [Recovered/Resolved]
  - Tremor [Recovered/Resolved]

NARRATIVE: CASE EVENT DATE: 2015
